FAERS Safety Report 21195733 (Version 2)
Quarter: 2022Q4

REPORT INFORMATION
  Report Type: Spontaneous
  Country: US (occurrence: US)
  Receive Date: 20220810
  Receipt Date: 20221004
  Transmission Date: 20230113
  Serious: No
  Sender: FDA-Public Use
  Company Number: US-PFIZER INC-202201045344

PATIENT
  Age: 68 Year
  Sex: Male
  Weight: 61.22 kg

DRUGS (2)
  1. PAXLOVID [Suspect]
     Active Substance: NIRMATRELVIR\RITONAVIR
     Indication: COVID-19 treatment
     Dosage: 400 MG (300MG/100MG DOSE PACK FOR 5 DAY)
     Dates: start: 20220802, end: 20220807
  2. PREDNISONE [Suspect]
     Active Substance: PREDNISONE
     Indication: Lung disorder
     Dosage: REGIMEN BREAK DOWN OF 6 ON 5,4,3,2,1
     Dates: start: 20220802, end: 20220806

REACTIONS (2)
  - Blood glucose increased [Recovering/Resolving]
  - Muscular weakness [Not Recovered/Not Resolved]

NARRATIVE: CASE EVENT DATE: 20220101
